FAERS Safety Report 24647581 (Version 1)
Quarter: 2024Q4

REPORT INFORMATION
  Report Type: Spontaneous
  Country: US (occurrence: None)
  Receive Date: 20241121
  Receipt Date: 20241121
  Transmission Date: 20250114
  Serious: No
  Sender: Public
  Company Number: None

PATIENT
  Age: 59 Year
  Sex: Female

DRUGS (2)
  1. DUPIXENT [Suspect]
     Active Substance: DUPILUMAB
     Indication: Nasal polyps
     Dates: start: 20241030, end: 20241111
  2. DUPIXENT [Suspect]
     Active Substance: DUPILUMAB
     Indication: Disease recurrence

REACTIONS (3)
  - Headache [None]
  - Eye pruritus [None]
  - Urticaria [None]

NARRATIVE: CASE EVENT DATE: 20241111
